FAERS Safety Report 4424552-0 (Version None)
Quarter: 2004Q3

REPORT INFORMATION
  Report Type: 
  Country: None (occurrence: None)
  Receive Date: 20040812
  Receipt Date: 20040326
  Transmission Date: 20050211
  Serious: Yes (Death, Hospitalization)
  Sender: FDA-Public Use
  Company Number: PL-BRISTOL-MYERS SQUIBB COMPANY-12543294

PATIENT
  Age: 59 Year
  Sex: Male

DRUGS (11)
  1. CISPLATIN [Suspect]
     Indication: NON-SMALL CELL LUNG CANCER
     Route: 042
     Dates: start: 20040203, end: 20040203
  2. PACLITAXEL [Suspect]
     Indication: NON-SMALL CELL LUNG CANCER
     Route: 042
     Dates: start: 20040203, end: 20040203
  3. ASPIRIN [Concomitant]
     Indication: MYOCARDIAL ISCHAEMIA
     Dates: start: 19910101
  4. ISOSORBIDE DINITRATE [Concomitant]
     Indication: MYOCARDIAL ISCHAEMIA
     Dates: start: 19910101
  5. BISOPROLOL FUMARATE [Concomitant]
     Indication: MYOCARDIAL ISCHAEMIA
     Dates: start: 20031114
  6. AMIODARONE HCL [Concomitant]
     Indication: VENTRICULAR EXTRASYSTOLES
     Dates: start: 20040306
  7. THEOPHYLLINE [Concomitant]
     Indication: DYSPNOEA
     Dates: start: 20040304
  8. FUROSEMIDE [Concomitant]
     Dates: start: 20030302
  9. POTASSIUM CHLORIDE [Concomitant]
     Dates: start: 20040306
  10. DEXAMETHASONE [Concomitant]
     Dates: start: 20040306
  11. OMEPRAZOLE [Concomitant]
     Dates: start: 20040306

REACTIONS (2)
  - CARDIAC FAILURE [None]
  - NON-SMALL CELL LUNG CANCER [None]
